FAERS Safety Report 10785800 (Version 6)
Quarter: 2015Q3

REPORT INFORMATION
  Report Type: Report from Study
  Country: AU (occurrence: AU)
  Receive Date: 20150211
  Receipt Date: 20150902
  Transmission Date: 20151125
  Serious: Yes (Death, Other)
  Sender: FDA-Public Use
  Company Number: PHHY2015AU010677

PATIENT
  Sex: Female

DRUGS (1)
  1. SANDOSTATIN LAR DEPOT [Suspect]
     Active Substance: OCTREOTIDE ACETATE
     Indication: CARCINOID SYNDROME
     Dosage: 20 MG, UNK
     Route: 030

REACTIONS (11)
  - Weight decreased [Unknown]
  - Eating disorder [Unknown]
  - Cognitive disorder [Unknown]
  - General physical health deterioration [Not Recovered/Not Resolved]
  - Ischaemic stroke [Fatal]
  - Inappropriate schedule of drug administration [Unknown]
  - Somnolence [Unknown]
  - Scar pain [Unknown]
  - Depressed level of consciousness [Unknown]
  - Cough [Unknown]
  - Dysphagia [Unknown]
